FAERS Safety Report 8688068 (Version 2)
Quarter: 2015Q2

REPORT INFORMATION
  Report Type: Report from Study
  Country: GB (occurrence: GB)
  Receive Date: 20120727
  Receipt Date: 20150515
  Transmission Date: 20150821
  Serious: Yes (Hospitalization)
  Sender: FDA-Public Use
  Company Number: GB-ROCHE-1091593

PATIENT
  Age: 66 Year
  Sex: Male
  Weight: 46 kg

DRUGS (4)
  1. CAPECITABINE. [Suspect]
     Active Substance: CAPECITABINE
     Indication: GASTRIC CANCER
     Dosage: RECENT DOSE TAKEN:45MG, 150MG, DATE OF DRUG TAKEN PRIOR TO ONSET OF AE:21/FEB/2012
     Route: 048
     Dates: start: 20111220
  2. EPIRUBICIN [Suspect]
     Active Substance: EPIRUBICIN
     Indication: GASTRIC CANCER
     Dosage: RECENT DOSE TAKEN:80MG, DATE OF DRUG TAKEN PRIOR TO ONSET OF AE:31/JAN/2012
     Route: 042
     Dates: start: 20111220
  3. BEVACIZUMAB [Suspect]
     Active Substance: BEVACIZUMAB
     Indication: GASTRIC CANCER
     Dosage: RECENT DOSE TAKEN:425MG,DATE OF DRUG TAKEN PRIOR TO ONSET OF AE:31/FEB/2012
     Route: 042
     Dates: start: 20111220
  4. CISPLATIN. [Suspect]
     Active Substance: CISPLATIN
     Indication: GASTRIC CANCER
     Dosage: RECENR DOSE TAKEN:100MG, DATE OF DRUG TAKEN PRIOR TO ONSET OF AE:31/JAN/2012
     Route: 042
     Dates: start: 20111220

REACTIONS (2)
  - Anastomotic leak [Recovered/Resolved]
  - Atrial fibrillation [Recovered/Resolved]

NARRATIVE: CASE EVENT DATE: 20120425
